FAERS Safety Report 9969355 (Version 1)
Quarter: 2014Q1

REPORT INFORMATION
  Report Type: Spontaneous
  Country: US (occurrence: US)
  Receive Date: 20140306
  Receipt Date: 20140306
  Transmission Date: 20141002
  Serious: No
  Sender: FDA-Public Use
  Company Number: US-BIOGENIDEC-2014BI018617

PATIENT
  Age: 45 Year
  Sex: Female

DRUGS (7)
  1. TECFIDERA [Suspect]
     Indication: MULTIPLE SCLEROSIS
     Route: 048
     Dates: start: 20140217
  2. BENADRYL [Concomitant]
  3. ADVAIR [Concomitant]
  4. LORAZEPAM [Concomitant]
  5. PROAIR [Concomitant]
  6. ALLEGRA [Concomitant]
  7. IBUPROFEN [Concomitant]

REACTIONS (4)
  - Underdose [Not Recovered/Not Resolved]
  - Flushing [Unknown]
  - Erythema [Unknown]
  - Pruritus [Unknown]
